FAERS Safety Report 24636773 (Version 3)
Quarter: 2024Q4

REPORT INFORMATION
  Report Type: Spontaneous
  Country: US (occurrence: US)
  Receive Date: 20241119
  Receipt Date: 20241220
  Transmission Date: 20250115
  Serious: No
  Sender: PFIZER
  Company Number: US-PFIZER INC-202400292979

PATIENT
  Age: 76 Year
  Sex: Male
  Weight: 88.435 kg

DRUGS (1)
  1. NIVESTYM [Suspect]
     Active Substance: FILGRASTIM-AAFI
     Dosage: 480 UG (INJECT SYRINGE ONCE DAILY FOR 2 DAYS STARTING 24HRS AFTER DAY 1 AND DAY 8 AT EVERY 21 DAY CY
     Route: 058
     Dates: start: 20241018

REACTIONS (1)
  - Device issue [Unknown]

NARRATIVE: CASE EVENT DATE: 20241101
